FAERS Safety Report 5842947-5 (Version None)
Quarter: 2008Q3

REPORT INFORMATION
  Report Type: 
  Country: None (occurrence: None)
  Receive Date: 20080811
  Receipt Date: 20080806
  Transmission Date: 20090109
  Serious: Yes (Other)
  Sender: FDA-Public Use
  Company Number: A0741675A

PATIENT
  Age: 46 Year
  Sex: Female

DRUGS (1)
  1. ASPIRIN + CAFFEINE + SALICYLAMIDE POWDER (ASPIRIN+CAFFEINE+SALICYCLA) [Suspect]
     Indication: HEADACHE
     Dosage: ORAL
     Route: 048

REACTIONS (4)
  - DRUG DEPENDENCE [None]
  - INCORRECT DOSE ADMINISTERED [None]
  - OVERDOSE [None]
  - PHARMACEUTICAL PRODUCT COMPLAINT [None]
